FAERS Safety Report 25551958 (Version 3)
Quarter: 2025Q4

REPORT INFORMATION
  Report Type: Report from Study
  Country: US (occurrence: US)
  Receive Date: 20250714
  Receipt Date: 20251011
  Transmission Date: 20260118
  Serious: Yes (Hospitalization, Other)
  Sender: ABBVIE
  Company Number: US-ABBVIE-6366652

PATIENT
  Age: 81 Year
  Sex: Female
  Weight: 43.544 kg

DRUGS (14)
  1. SKYRIZI [Suspect]
     Active Substance: RISANKIZUMAB-RZAA
     Indication: Crohn^s disease
     Dosage: FORM STRENGTH 360 MG?DOSE FORM- SOLUTION FOR INJECTION IN PRE-FILLED INJECTOR
     Route: 058
     Dates: start: 202501
  2. CODEINE [Concomitant]
     Active Substance: CODEINE
     Indication: Product used for unknown indication
  3. ALPRAZOLAM [Concomitant]
     Active Substance: ALPRAZOLAM
     Indication: Anxiety
  4. PREDNISONE [Concomitant]
     Active Substance: PREDNISONE
     Indication: Arthritis
  5. LUTEIN [Concomitant]
     Active Substance: LUTEIN
     Indication: Eye disorder
  6. LEVOCETIRIZINE [Concomitant]
     Active Substance: LEVOCETIRIZINE
     Indication: Multiple allergies
  7. BALSALAZIDE [Concomitant]
     Active Substance: BALSALAZIDE
     Indication: Crohn^s disease
     Dosage: 6 TABS DAILY
     Dates: start: 20090710
  8. TYLENOL [Concomitant]
     Active Substance: ACETAMINOPHEN
     Indication: Arthritis
  9. PROBIOTICS NOS [Concomitant]
     Active Substance: PROBIOTICS NOS
     Indication: Probiotic therapy
  10. METOPROLOL [Concomitant]
     Active Substance: METOPROLOL
     Indication: Blood pressure measurement
  11. ALLEGRA [Concomitant]
     Active Substance: FEXOFENADINE HYDROCHLORIDE
     Indication: Multiple allergies
  12. PRILOSEC [Concomitant]
     Active Substance: OMEPRAZOLE MAGNESIUM
     Indication: Gastrooesophageal reflux disease
  13. LISINOPRIL [Concomitant]
     Active Substance: LISINOPRIL
     Indication: Blood pressure measurement
  14. COENZYME Q10 [Concomitant]
     Active Substance: DIETARY SUPPLEMENT\UBIDECARENONE
     Indication: Enzyme supplementation

REACTIONS (3)
  - Atrial fibrillation [Recovered/Resolved]
  - Dehydration [Recovering/Resolving]
  - Suture insertion [Not Recovered/Not Resolved]

NARRATIVE: CASE EVENT DATE: 20250101
